FAERS Safety Report 15572531 (Version 1)
Quarter: 2018Q4

REPORT INFORMATION
  Report Type: Spontaneous
  Country: ES (occurrence: ES)
  Receive Date: 20181031
  Receipt Date: 20181031
  Transmission Date: 20190205
  Serious: Yes (Hospitalization, Other)
  Sender: FDA-Public Use
  Company Number: ES-MYLANLABS-2018M1081419

PATIENT
  Age: 60 Year
  Sex: Male

DRUGS (1)
  1. TACROLIMUS MYLAN 1 MG C?PSULAS DURAS EFG [Suspect]
     Active Substance: TACROLIMUS
     Indication: GLOMERULONEPHRITIS MEMBRANOUS
     Dosage: 4,5 MG, CADA 24 HORAS
     Route: 048
     Dates: start: 20171123

REACTIONS (6)
  - Cough [Recovered/Resolved]
  - Diarrhoea [Recovered/Resolved]
  - Vomiting [Recovered/Resolved]
  - Tubulointerstitial nephritis [Recovered/Resolved]
  - Pyrexia [Recovered/Resolved]
  - Respiratory tract infection [Recovered/Resolved]

NARRATIVE: CASE EVENT DATE: 20171215
